FAERS Safety Report 9344876 (Version 1)
Quarter: 2013Q2

REPORT INFORMATION
  Report Type: Spontaneous
  Country: DE (occurrence: DE)
  Receive Date: 20130612
  Receipt Date: 20130612
  Transmission Date: 20140414
  Serious: Yes (Hospitalization, Congenital Anomaly)
  Sender: FDA-Public Use
  Company Number: DE-GLAXOSMITHKLINE-D0080073A

PATIENT
  Sex: Female
  Weight: 3.3 kg

DRUGS (3)
  1. ZOVIRAX [Suspect]
     Indication: OPHTHALMIC HERPES ZOSTER
     Route: 064
     Dates: start: 20070921, end: 20071121
  2. FLOXAL [Suspect]
     Indication: OPHTHALMIC HERPES ZOSTER
     Route: 064
     Dates: start: 20070921, end: 20071121
  3. PRENATAL NUTRIENTS [Concomitant]
     Indication: PROPHYLAXIS OF NEURAL TUBE DEFECT
     Dosage: .5MG PER DAY
     Route: 064

REACTIONS (3)
  - Tracheal stenosis [Recovered/Resolved with Sequelae]
  - Dyspnoea [Recovered/Resolved with Sequelae]
  - Foetal exposure during pregnancy [Unknown]
